FAERS Safety Report 20029142 (Version 2)
Quarter: 2021Q4

REPORT INFORMATION
  Report Type: Report from Study
  Country: MX (occurrence: MX)
  Receive Date: 20211103
  Receipt Date: 20211122
  Transmission Date: 20220303
  Serious: Yes (Hospitalization)
  Sender: FDA-Public Use
  Company Number: MX-NOVARTISPH-NVSC2021MX200234

PATIENT
  Age: 18 Year
  Sex: Female
  Weight: 60.5 kg

DRUGS (6)
  1. GILENYA [Suspect]
     Active Substance: FINGOLIMOD HYDROCHLORIDE
     Indication: Multiple sclerosis
     Dosage: 0.5 MG, QD
     Route: 048
     Dates: start: 20210619
  2. PAROXETINE [Concomitant]
     Active Substance: PAROXETINE
     Indication: Depression
     Dosage: UNK, QD (IN MORNING)
     Route: 048
     Dates: start: 202108
  3. PREGABALIN [Concomitant]
     Active Substance: PREGABALIN
     Indication: Pain
     Dosage: 1 DF
     Route: 048
     Dates: start: 202004
  4. PREGABALIN [Concomitant]
     Active Substance: PREGABALIN
     Indication: Adenoma benign
     Dosage: 0.5 UNK
     Route: 048
  5. PAROXETINE [Concomitant]
     Active Substance: PAROXETINE
     Indication: Depression
     Dosage: 20 MG, QD
     Route: 048
     Dates: start: 202105
  6. CABERGOLINE [Concomitant]
     Active Substance: CABERGOLINE
     Indication: Depression
     Dosage: 0.5 MG EVERY 15 DAYS
     Route: 048
     Dates: start: 202105

REACTIONS (10)
  - Gastroenteritis [Recovered/Resolved]
  - Menstruation irregular [Not Recovered/Not Resolved]
  - Heavy menstrual bleeding [Unknown]
  - Headache [Recovered/Resolved]
  - Photosensitivity reaction [Recovered/Resolved]
  - Balance disorder [Recovered/Resolved]
  - Eye movement disorder [Recovered/Resolved]
  - Feeling drunk [Recovered/Resolved]
  - Stress [Recovered/Resolved]
  - Headache [Recovered/Resolved]

NARRATIVE: CASE EVENT DATE: 20210601
